FAERS Safety Report 14139081 (Version 1)
Quarter: 2017Q4

REPORT INFORMATION
  Report Type: Report from Study
  Country: US (occurrence: US)
  Receive Date: 20171027
  Receipt Date: 20171027
  Transmission Date: 20180321
  Serious: Yes (Hospitalization)
  Sender: FDA-Public Use
  Company Number: US-EXELIXIS-CABO-17010964

PATIENT
  Age: 81 Year
  Sex: Male

DRUGS (8)
  1. LIPITOR [Concomitant]
     Active Substance: ATORVASTATIN CALCIUM
  2. SYNTHROID [Concomitant]
     Active Substance: LEVOTHYROXINE SODIUM
  3. CARDIZAR [Concomitant]
  4. NORDIP [Concomitant]
  5. CABOMETYX [Suspect]
     Active Substance: CABOZANTINIB S-MALATE
     Indication: RENAL CANCER
     Dosage: 20 MG, QD
     Route: 048
     Dates: start: 20170919
  6. TAMSULOSIN [Concomitant]
     Active Substance: TAMSULOSIN
  7. MONOPRIL [Concomitant]
     Active Substance: FOSINOPRIL SODIUM
  8. MEGACE [Concomitant]
     Active Substance: MEGESTROL ACETATE

REACTIONS (2)
  - Lung disorder [Unknown]
  - Thrombosis [Unknown]

NARRATIVE: CASE EVENT DATE: 20171012
